FAERS Safety Report 6779319-5 (Version None)
Quarter: 2010Q2

REPORT INFORMATION
  Report Type: 
  Country: None (occurrence: None)
  Receive Date: 20100618
  Receipt Date: 20100607
  Transmission Date: 20101027
  Serious: Yes (Hospitalization, Other)
  Sender: FDA-Public Use
  Company Number: PHHY2009JP44986

PATIENT
  Sex: Male

DRUGS (17)
  1. GLEEVEC [Suspect]
     Indication: ACUTE LYMPHOCYTIC LEUKAEMIA
     Dosage: 800 MG/DAY
     Route: 048
     Dates: start: 20071214, end: 20081207
  2. GLEEVEC [Suspect]
     Dosage: 400 MG, UNK
     Route: 048
  3. PREDNISOLONE [Concomitant]
     Indication: ACUTE LYMPHOCYTIC LEUKAEMIA
     Dosage: 20 MG, UNK
     Route: 065
     Dates: start: 20071207
  4. PREDNISOLONE [Concomitant]
     Dosage: 30 MG, UNK
  5. PREDNISOLONE [Concomitant]
     Dosage: 40 MG, UNK
  6. PREDNISOLONE [Concomitant]
     Dosage: 50 MG, UNK
  7. PREDNISOLONE [Concomitant]
     Dosage: 60 MG, UNK
  8. PREDNISOLONE [Concomitant]
     Dosage: 50 MG, UNK
  9. PREDNISOLONE [Concomitant]
     Dosage: 40 MG, UNK
  10. PREDNISOLONE [Concomitant]
     Dosage: 30 MG, UNK
     Route: 048
  11. PREDNISOLONE [Concomitant]
     Dosage: 20 MG, UNK
     Route: 048
  12. PREDNISOLONE [Concomitant]
     Dosage: 15 MG, UNK
     Route: 048
  13. PREDNISOLONE [Concomitant]
     Dosage: 10 MG, UNK
     Route: 048
  14. PREDNISOLONE [Concomitant]
     Dosage: 5 MG, UNK
     Route: 048
  15. PREDNISOLONE [Concomitant]
     Dosage: 40 MG, UNK
     Route: 048
     Dates: end: 20071211
  16. DASATINIB [Concomitant]
     Indication: ACUTE LYMPHOCYTIC LEUKAEMIA (IN REMISSION)
     Dosage: 100 MG
     Route: 065
  17. ZYLORIC [Concomitant]
     Indication: ACUTE LYMPHOCYTIC LEUKAEMIA
     Dosage: 300 MG, UNK
     Route: 048
     Dates: start: 20071205, end: 20080125

REACTIONS (2)
  - INTERSTITIAL LUNG DISEASE [None]
  - LIVER DISORDER [None]
